FAERS Safety Report 9531335 (Version 2)
Quarter: 2013Q3

REPORT INFORMATION
  Report Type: Report from Study
  Country: GB (occurrence: GB)
  Receive Date: 20130918
  Receipt Date: 20130918
  Transmission Date: 20140515
  Serious: Yes (Other)
  Sender: FDA-Public Use
  Company Number: GB-ASTELLAS-2013EU007278

PATIENT
  Age: 8 Year
  Sex: Male

DRUGS (6)
  1. TACROLIMUS SYSTEMIC [Suspect]
     Indication: LIVER TRANSPLANT
     Dosage: 60 MG, UNKNOWN/D
     Route: 065
  2. TACROLIMUS SYSTEMIC [Interacting]
     Dosage: 5 MG, UNKNOWN/D
     Route: 065
  3. TACROLIMUS SYSTEMIC [Interacting]
     Dosage: 1 MG, BID
     Route: 042
  4. FLUCONAZOLE [Interacting]
     Dosage: 90 MG, UNKNOWN/D
     Route: 065
  5. FLUCONAZOLE [Interacting]
     Dosage: 100 MG, UNKNOWN/D
     Route: 065
  6. ERYTHROMYCIN [Interacting]
     Dosage: 250 MG, TID
     Route: 065

REACTIONS (13)
  - Drug interaction [Unknown]
  - Drug interaction [Unknown]
  - Malabsorption [Unknown]
  - Immunosuppressant drug level decreased [Recovered/Resolved]
  - Liver transplant rejection [Not Recovered/Not Resolved]
  - Hepatitis viral [Unknown]
  - Rash [Unknown]
  - Renal impairment [Unknown]
  - Transplant rejection [Not Recovered/Not Resolved]
  - Rash [Unknown]
  - Pyrexia [Unknown]
  - Roux loop conversion [Recovering/Resolving]
  - Adhesion [Unknown]
